FAERS Safety Report 11087373 (Version 1)
Quarter: 2015Q2

REPORT INFORMATION
  Report Type: Spontaneous
  Country: US (occurrence: None)
  Receive Date: 20150501
  Receipt Date: 20150501
  Transmission Date: 20150821
  Serious: Yes (Disabling)
  Sender: FDA-Public Use
  Company Number: None

PATIENT
  Age: 65 Year
  Sex: Female
  Weight: 97.98 kg

DRUGS (2)
  1. VANCONYCIN [Suspect]
     Active Substance: VANCOMYCIN HYDROCHLORIDE
  2. GENTAMICIN. [Suspect]
     Active Substance: GENTAMICIN

REACTIONS (3)
  - Vestibular disorder [None]
  - Drug hypersensitivity [None]
  - Deafness neurosensory [None]

NARRATIVE: CASE EVENT DATE: 20130705
